FAERS Safety Report 6933865-X (Version None)
Quarter: 2010Q3

REPORT INFORMATION
  Report Type: 
  Country: None (occurrence: None)
  Receive Date: 20100820
  Receipt Date: 20100810
  Transmission Date: 20110219
  Serious: Yes (Hospitalization, Disabling)
  Sender: FDA-Public Use
  Company Number: JP-JNJFOC-20100600554

PATIENT
  Sex: Male

DRUGS (17)
  1. INTELENCE [Suspect]
     Indication: HIV INFECTION
     Route: 048
  2. EPZICOM [Suspect]
     Indication: HIV INFECTION
     Route: 048
  3. EPZICOM [Suspect]
     Route: 048
  4. RETROVIR [Suspect]
     Indication: HIV INFECTION
     Route: 048
  5. EPIVIR [Suspect]
     Indication: HIV INFECTION
     Route: 048
  6. LEXIVA [Suspect]
     Indication: HIV INFECTION
     Route: 048
  7. TRUVADA [Suspect]
     Indication: HIV INFECTION
     Route: 048
  8. INVIRASE [Suspect]
     Indication: HIV INFECTION
     Route: 048
  9. NORVIR [Concomitant]
     Indication: HIV INFECTION
     Route: 048
  10. STOCRIN [Concomitant]
     Indication: HIV INFECTION
     Route: 048
  11. STOCRIN [Concomitant]
     Route: 048
  12. KALETRA [Concomitant]
     Indication: HIV INFECTION
     Route: 048
  13. ISENTRESS [Concomitant]
     Indication: HIV INFECTION
     Route: 048
  14. VITAMIN D [Concomitant]
     Route: 048
  15. METHYCOBAL [Concomitant]
     Route: 042
  16. METHYCOBAL [Concomitant]
     Route: 042
  17. METHYCOBAL [Concomitant]
     Route: 042

REACTIONS (1)
  - SUBACUTE COMBINED CORD DEGENERATION [None]
